FAERS Safety Report 8566809 (Version 3)
Quarter: 2012Q4

REPORT INFORMATION
  Report Type: Report from Study
  Country: US (occurrence: US)
  Receive Date: 20120517
  Receipt Date: 20121010
  Transmission Date: 20130627
  Serious: Yes (Other)
  Sender: FDA-Public Use
  Company Number: US-ROCHE-1055256

PATIENT
  Age: 69 Year
  Sex: Male
  Weight: 95.34 kg

DRUGS (3)
  1. ZELBORAF [Suspect]
     Indication: METASTATIC MALIGNANT MELANOMA
     Route: 048
     Dates: start: 20120301
  2. ZELBORAF [Suspect]
     Route: 048
     Dates: start: 20120315
  3. ZELBORAF [Suspect]
     Route: 048
     Dates: start: 20120401

REACTIONS (10)
  - Sunburn [Recovered/Resolved]
  - Rash [Unknown]
  - Mass [Recovering/Resolving]
  - Squamous cell carcinoma of skin [Recovering/Resolving]
  - Alopecia [Unknown]
  - Photosensitivity reaction [Not Recovered/Not Resolved]
  - Diarrhoea [Not Recovered/Not Resolved]
  - Haemorrhoids [Not Recovered/Not Resolved]
  - Weight decreased [Unknown]
  - Eating disorder [Unknown]
